FAERS Safety Report 25647074 (Version 2)
Quarter: 2025Q3

REPORT INFORMATION
  Report Type: Spontaneous
  Country: JP (occurrence: JP)
  Receive Date: 20250806
  Receipt Date: 20250821
  Transmission Date: 20251020
  Serious: Yes (Other)
  Sender: UCB
  Company Number: JP-UCBJ-CD202510132UCBPHAPROD

PATIENT
  Age: 2 Year
  Sex: Male

DRUGS (2)
  1. LEVETIRACETAM [Suspect]
     Active Substance: LEVETIRACETAM
     Indication: Epilepsy
     Route: 048
  2. VALPROATE SODIUM [Suspect]
     Active Substance: VALPROATE SODIUM
     Indication: Epilepsy

REACTIONS (4)
  - Tonic convulsion [Unknown]
  - Partial seizures with secondary generalisation [Unknown]
  - Obstructive sleep apnoea syndrome [Unknown]
  - Off label use [Unknown]
